FAERS Safety Report 25524894 (Version 1)
Quarter: 2025Q3

REPORT INFORMATION
  Report Type: Spontaneous
  Country: EU (occurrence: EU)
  Receive Date: 20250707
  Receipt Date: 20250707
  Transmission Date: 20251020
  Serious: Yes (Death, Hospitalization)
  Sender: MYLAN
  Company Number: EU-MYLANLABS-2025M1056142

PATIENT
  Age: 64 Year
  Sex: Female

DRUGS (4)
  1. VANCOMYCIN [Suspect]
     Active Substance: VANCOMYCIN
     Indication: Staphylococcal infection
  2. VANCOMYCIN [Suspect]
     Active Substance: VANCOMYCIN
     Route: 065
  3. VANCOMYCIN [Suspect]
     Active Substance: VANCOMYCIN
     Route: 065
  4. VANCOMYCIN [Suspect]
     Active Substance: VANCOMYCIN

REACTIONS (1)
  - Drug ineffective [Fatal]
